FAERS Safety Report 5846011-0 (Version None)
Quarter: 2008Q3

REPORT INFORMATION
  Report Type: 
  Country: None (occurrence: None)
  Receive Date: 20080814
  Receipt Date: 20080805
  Transmission Date: 20090109
  Serious: Yes (Other)
  Sender: FDA-Public Use
  Company Number: US-PFIZER INC-2007089783

PATIENT
  Sex: Female
  Weight: 59 kg

DRUGS (3)
  1. CHANTIX [Suspect]
     Indication: SMOKING CESSATION THERAPY
     Dates: start: 20070929, end: 20071015
  2. ZOLOFT [Concomitant]
  3. VITAMIN TAB [Concomitant]

REACTIONS (10)
  - ADVERSE EVENT [None]
  - ANOREXIA [None]
  - CHEST DISCOMFORT [None]
  - DYSPEPSIA [None]
  - DYSPNOEA [None]
  - HYPERSOMNIA [None]
  - MALAISE [None]
  - PRURITUS [None]
  - RESTLESS LEGS SYNDROME [None]
  - SLEEP DISORDER [None]
